FAERS Safety Report 21874910 (Version 1)
Quarter: 2023Q1

REPORT INFORMATION
  Report Type: Spontaneous
  Country: US (occurrence: US)
  Receive Date: 20230117
  Receipt Date: 20230117
  Transmission Date: 20230418
  Serious: No
  Sender: FDA-Public Use
  Company Number: US-EVOKE PHARMA, INC.-2022EVO000203

PATIENT

DRUGS (1)
  1. GIMOTI [Suspect]
     Active Substance: METOCLOPRAMIDE HYDROCHLORIDE
     Indication: Diabetic gastroparesis
     Dosage: 15 MILLIGRAM, QID, SPRAY 1 SPRAY IN ONE NOSTRIL 30 MINUTES BEFORE EACH MEAL AND AT BEDTIME.
     Route: 045
     Dates: start: 20221128, end: 20221202

REACTIONS (6)
  - Vomiting [Recovered/Resolved]
  - Asthenia [Recovered/Resolved]
  - Decreased appetite [Recovered/Resolved]
  - Weight decreased [Recovered/Resolved]
  - Diarrhoea [Recovered/Resolved]
  - Contraindicated product administered [Unknown]

NARRATIVE: CASE EVENT DATE: 20221128
